FAERS Safety Report 10468400 (Version 2)
Quarter: 2015Q3

REPORT INFORMATION
  Report Type: Spontaneous
  Country: US (occurrence: US)
  Receive Date: 20140922
  Receipt Date: 20150921
  Transmission Date: 20151125
  Serious: No
  Sender: FDA-Public Use
  Company Number: US-ALLERGAN-1414761US

PATIENT
  Age: 61 Year
  Sex: Female

DRUGS (1)
  1. LASTACAFT [Suspect]
     Active Substance: ALCAFTADINE
     Indication: OCULAR HYPERAEMIA
     Dosage: 2 GTT, SINGLE
     Route: 047
     Dates: start: 20140626, end: 20140626

REACTIONS (1)
  - Ocular hyperaemia [Recovered/Resolved]
